FAERS Safety Report 16764508 (Version 1)
Quarter: 2019Q3

REPORT INFORMATION
  Report Type: Spontaneous
  Country: US (occurrence: US)
  Receive Date: 20190902
  Receipt Date: 20190902
  Transmission Date: 20191005
  Serious: No
  Sender: FDA-Public Use
  Company Number: US-009507513-1908USA012995

PATIENT
  Age: 72 Year
  Sex: Female

DRUGS (5)
  1. PAROXETINE. [Concomitant]
     Active Substance: PAROXETINE
     Dosage: 50 MILLIGRAM, ONCE A DAY
     Route: 048
     Dates: start: 201702
  2. JANUVIA [Suspect]
     Active Substance: SITAGLIPTIN PHOSPHATE
     Indication: DIABETES MELLITUS
     Dosage: 50 MILLIGRAM ONCE A DAY
     Route: 048
     Dates: start: 201702
  3. LIPITOR [Concomitant]
     Active Substance: ATORVASTATIN CALCIUM
  4. GLUCOTROL [Concomitant]
     Active Substance: GLIPIZIDE
  5. HYZAAR [Concomitant]
     Active Substance: HYDROCHLOROTHIAZIDE\LOSARTAN POTASSIUM

REACTIONS (2)
  - Dizziness [Recovered/Resolved]
  - Product dose omission [Unknown]

NARRATIVE: CASE EVENT DATE: 20190828
